FAERS Safety Report 10496651 (Version 2)
Quarter: 2014Q4

REPORT INFORMATION
  Report Type: Report from Study
  Country: CO (occurrence: CO)
  Receive Date: 20141006
  Receipt Date: 20141006
  Transmission Date: 20150528
  Serious: Yes (Other)
  Sender: FDA-Public Use
  Company Number: CO-ROCHE-1378237

PATIENT
  Age: 35 Year
  Sex: Female
  Weight: 78 kg

DRUGS (9)
  1. SYMBICORT [Concomitant]
     Active Substance: BUDESONIDE\FORMOTEROL FUMARATE DIHYDRATE
  2. MONTELUKAST [Concomitant]
     Active Substance: MONTELUKAST SODIUM
  3. XOLAIR [Suspect]
     Active Substance: OMALIZUMAB
     Route: 058
  4. NASONEX [Concomitant]
     Active Substance: MOMETASONE FUROATE
  5. ALLEGRA [Concomitant]
     Active Substance: FEXOFENADINE HYDROCHLORIDE
  6. ASPIRIN. [Concomitant]
     Active Substance: ASPIRIN
  7. XOLAIR [Suspect]
     Active Substance: OMALIZUMAB
     Route: 065
  8. XOLAIR [Suspect]
     Active Substance: OMALIZUMAB
     Route: 058
     Dates: end: 201312
  9. XOLAIR [Suspect]
     Active Substance: OMALIZUMAB
     Indication: ASTHMA
     Route: 058
     Dates: start: 20130702

REACTIONS (7)
  - Pneumonia [Unknown]
  - Sinusitis [Unknown]
  - Influenza [Unknown]
  - Cough [Unknown]
  - Headache [Unknown]
  - Alopecia [Unknown]
  - Anxiety [Recovered/Resolved]

NARRATIVE: CASE EVENT DATE: 20130702
